FAERS Safety Report 16100455 (Version 3)
Quarter: 2022Q4

REPORT INFORMATION
  Report Type: Spontaneous
  Country: US (occurrence: US)
  Receive Date: 20190321
  Receipt Date: 20221116
  Transmission Date: 20230113
  Serious: No
  Sender: FDA-Public Use
  Company Number: US-PFIZER INC-2019119902

PATIENT
  Age: 59 Year
  Sex: Female

DRUGS (1)
  1. XELJANZ XR [Suspect]
     Active Substance: TOFACITINIB CITRATE
     Indication: Arthritis
     Dosage: 11 MG, ONCE DAILY (FIRST THING IN THE MORNING)

REACTIONS (6)
  - Nasopharyngitis [Unknown]
  - COVID-19 [Unknown]
  - Swelling face [Unknown]
  - Erythema [Unknown]
  - Arthropod bite [Unknown]
  - Facial pain [Unknown]

NARRATIVE: CASE EVENT DATE: 20190101
